FAERS Safety Report 23728242 (Version 1)
Quarter: 2024Q2

REPORT INFORMATION
  Report Type: Spontaneous
  Country: CN (occurrence: CN)
  Receive Date: 20240410
  Receipt Date: 20240410
  Transmission Date: 20240717
  Serious: Yes (Hospitalization, Other)
  Sender: FDA-Public Use
  Company Number: CN-009507513-2404CHN001577

PATIENT
  Age: 49 Year
  Sex: Male
  Weight: 68 kg

DRUGS (2)
  1. CILASTATIN SODIUM\IMIPENEM [Suspect]
     Active Substance: CILASTATIN SODIUM\IMIPENEM
     Indication: Infection
     Dosage: 500 MILLIGRAM, Q12H (ALSO REPORTED AS TID IN THE ORIGINAL AGENCY REPORT)
     Route: 041
     Dates: start: 20240325, end: 20240329
  2. ACETYLCYSTEINE [Concomitant]
     Active Substance: ACETYLCYSTEINE
     Indication: Productive cough
     Dosage: 0.3 GRAM, QD
     Dates: start: 20240322, end: 20240402

REACTIONS (2)
  - Generalised tonic-clonic seizure [Recovering/Resolving]
  - Chronic kidney disease [Unknown]

NARRATIVE: CASE EVENT DATE: 20240101
